FAERS Safety Report 5893584-8 (Version None)
Quarter: 2008Q3

REPORT INFORMATION
  Report Type: 
  Country: None (occurrence: None)
  Receive Date: 20080918
  Receipt Date: 20080908
  Transmission Date: 20090109
  Serious: Yes (Other)
  Sender: FDA-Public Use
  Company Number: 2008AP002250

PATIENT
  Age: 88 Year
  Sex: Female

DRUGS (7)
  1. ALENDRONATE SODIUM [Suspect]
     Indication: OSTEOPOROSIS POSTMENOPAUSAL
     Dosage: 1 DF, QW, PO
     Route: 048
     Dates: start: 20071010, end: 20080717
  2. AMOROLFINE (AMOROLFINE) [Concomitant]
  3. ACETYLSALICYLIC ACID SRT [Concomitant]
  4. CLOBETASOL PROPIONATE [Concomitant]
  5. FUROSEMIDE [Concomitant]
  6. RAMIPRIL [Concomitant]
  7. MEDICATED DRESSINGS (MEDICATED DRESSINGS) [Concomitant]

REACTIONS (3)
  - BLISTER [None]
  - PEMPHIGOID [None]
  - RASH GENERALISED [None]
